FAERS Safety Report 21447433 (Version 1)
Quarter: 2022Q4

REPORT INFORMATION
  Report Type: Spontaneous
  Country: DE (occurrence: DE)
  Receive Date: 20221012
  Receipt Date: 20221012
  Transmission Date: 20230112
  Serious: Yes (Hospitalization, Other)
  Sender: FDA-Public Use
  Company Number: DE-ADRED-07876-02

PATIENT
  Age: 85 Year
  Sex: Female
  Weight: 55 kg

DRUGS (8)
  1. TORSEMIDE [Interacting]
     Active Substance: TORSEMIDE
     Indication: Product used for unknown indication
     Dosage: .5 DOSAGE FORMS DAILY; 10 MG, 0.5-0-0-0
  2. MELPERONE [Interacting]
     Active Substance: MELPERONE
     Indication: Product used for unknown indication
     Dosage: 25 MG/5ML, 2.5-0-5-5,
  3. AMLODIPINE [Interacting]
     Active Substance: AMLODIPINE BESYLATE
     Indication: Product used for unknown indication
     Dosage: 10 MILLIGRAM DAILY; 10 MG, 0-0-1-0
  4. FENTANYL [Interacting]
     Active Substance: FENTANYL
     Indication: Product used for unknown indication
     Dosage: 25 MCG/H, EVERY 3 DAYS, PATCH TRANSDERMAL
     Route: 062
  5. METAMIZOL [Concomitant]
     Active Substance: METAMIZOLE SODIUM
     Indication: Product used for unknown indication
     Dosage: 120 GTT DAILY; 500 MG/ML, 30-30-30-30, DROPS
  6. DICLOFENAC [Concomitant]
     Active Substance: DICLOFENAC
     Indication: Product used for unknown indication
     Dosage: 2 DOSAGE FORMS DAILY; 10 MG/G, 1-0-1-0,
  7. PANTOPRAZOLE SODIUM [Concomitant]
     Active Substance: PANTOPRAZOLE SODIUM
     Indication: Product used for unknown indication
     Dosage: 20 MILLIGRAM DAILY; 20 MG, 0-0-1-0,
  8. MIRTAZAPINE [Concomitant]
     Active Substance: MIRTAZAPINE
     Indication: Product used for unknown indication
     Dosage: 15 MILLIGRAM DAILY; 15 MG, 0-0-0-1

REACTIONS (4)
  - Delirium [Unknown]
  - Labelled drug-drug interaction medication error [Unknown]
  - Product monitoring error [Unknown]
  - Musculoskeletal pain [Unknown]

NARRATIVE: CASE EVENT DATE: 20210610
